FAERS Safety Report 22240031 (Version 1)
Quarter: 2023Q2

REPORT INFORMATION
  Report Type: Spontaneous
  Country: US (occurrence: US)
  Receive Date: 20230421
  Receipt Date: 20230421
  Transmission Date: 20230722
  Serious: Yes (Death, Other)
  Sender: FDA-Public Use
  Company Number: US-MALLINCKRODT-MNK202301145

PATIENT
  Age: 28 Week

DRUGS (4)
  1. NITRIC OXIDE [Suspect]
     Active Substance: NITRIC OXIDE
     Indication: Pneumothorax
     Dosage: 10 PPM
     Route: 055
     Dates: start: 20230409, end: 20230410
  2. NITRIC OXIDE [Suspect]
     Active Substance: NITRIC OXIDE
     Indication: Pneumopericardium
  3. NITRIC OXIDE [Suspect]
     Active Substance: NITRIC OXIDE
     Indication: Pulmonary interstitial emphysema syndrome
  4. EPINEPHRINE [Concomitant]
     Active Substance: EPINEPHRINE
     Indication: Product used for unknown indication
     Dosage: UNKNOWN
     Route: 041
     Dates: start: 20230410, end: 20230410

REACTIONS (5)
  - Cardiac arrest [Fatal]
  - Heart rate decreased [Not Recovered/Not Resolved]
  - Oxygen saturation decreased [Not Recovered/Not Resolved]
  - Device use issue [Unknown]
  - Product use issue [Unknown]

NARRATIVE: CASE EVENT DATE: 20230409
